FAERS Safety Report 5083802-0 (Version None)
Quarter: 2006Q3

REPORT INFORMATION
  Report Type: 
  Country: None (occurrence: None)
  Receive Date: 20060818
  Receipt Date: 20060807
  Transmission Date: 20061208
  Serious: Yes (Other)
  Sender: FDA-Public Use
  Company Number: JP-ABBOTT-06P-087-0339691-00

PATIENT
  Age: 14 Year
  Sex: Male

DRUGS (3)
  1. CEFZON [Suspect]
     Indication: NASOPHARYNGITIS
     Route: 048
     Dates: start: 20060624
  2. IBUPROFEN [Concomitant]
     Indication: DRUG USE FOR UNKNOWN INDICATION
     Route: 048
     Dates: start: 20060624
  3. CHLORPHENIRAMINE MALEATE [Concomitant]
     Indication: DRUG USE FOR UNKNOWN INDICATION
     Route: 048
     Dates: start: 20060624

REACTIONS (2)
  - FEELING ABNORMAL [None]
  - FRACTURE [None]
